FAERS Safety Report 5762270-7 (Version None)
Quarter: 2008Q2

REPORT INFORMATION
  Report Type: 
  Country: None (occurrence: None)
  Receive Date: 20080609
  Receipt Date: 20080602
  Transmission Date: 20081010
  Serious: Yes (Death)
  Sender: FDA-Public Use
  Company Number: DE-BAYER-200819576GPV

PATIENT
  Age: 75 Year
  Sex: Male
  Weight: 80 kg

DRUGS (10)
  1. SORAFENIB [Suspect]
     Indication: RENAL CELL CARCINOMA
     Dosage: TOTAL DAILY DOSE: 800 MG
     Route: 048
     Dates: start: 20080328, end: 20080530
  2. ENABETA [Concomitant]
     Indication: HYPERTENSION
     Route: 065
     Dates: start: 20070516
  3. ENABETA [Concomitant]
     Route: 065
     Dates: start: 19990101, end: 20070510
  4. GLUCOPHAGE [Concomitant]
     Indication: TYPE 2 DIABETES MELLITUS
     Dosage: TOTAL DAILY DOSE: 2000 MG
     Route: 065
     Dates: start: 19990101
  5. AMARYL [Concomitant]
     Indication: TYPE 2 DIABETES MELLITUS
     Route: 065
     Dates: start: 19990101, end: 20060621
  6. GLIMEPIRIDE [Concomitant]
     Indication: TYPE 2 DIABETES MELLITUS
     Route: 065
     Dates: start: 20070516
  7. GLIMEPIRIDE [Concomitant]
     Route: 065
     Dates: start: 20060621, end: 20070515
  8. CIPRO BASICS [Concomitant]
     Indication: INFLUENZA LIKE ILLNESS
     Route: 065
     Dates: start: 20070516, end: 20070526
  9. CLOTRIMAZOLE [Concomitant]
     Indication: PRURITUS
     Route: 065
     Dates: start: 20080227, end: 20080423
  10. METOCLOPRAMIDE HYDROCHLORIDE [Concomitant]
     Indication: DRUG USE FOR UNKNOWN INDICATION
     Route: 065
     Dates: start: 20080227, end: 20080423

REACTIONS (1)
  - SUDDEN DEATH [None]
